FAERS Safety Report 10763055 (Version 5)
Quarter: 2015Q3

REPORT INFORMATION
  Report Type: Report from Study
  Country: JP (occurrence: JP)
  Receive Date: 20150204
  Receipt Date: 20150703
  Transmission Date: 20151125
  Serious: Yes (Life-Threatening, Hospitalization)
  Sender: FDA-Public Use
  Company Number: JP-ASTRAZENECA-2015SE08940

PATIENT
  Age: 73 Year
  Sex: Male
  Weight: 67 kg

DRUGS (8)
  1. PITAVASTATIN CA [Concomitant]
     Dosage: DOSE UNKNOWN
     Route: 048
     Dates: start: 20141128, end: 20141211
  2. LANTUS [Concomitant]
     Active Substance: INSULIN GLARGINE
     Route: 042
     Dates: start: 20140627, end: 20140808
  3. FLUCORT [Concomitant]
     Dosage: DOSE UNKNOWN
     Route: 062
     Dates: start: 20141031, end: 20141113
  4. TENELIA [Concomitant]
     Active Substance: CITALOPRAM HYDROBROMIDE
     Indication: TYPE 2 DIABETES MELLITUS
     Route: 048
     Dates: start: 20140516
  5. LANTUS [Concomitant]
     Active Substance: INSULIN GLARGINE
     Route: 042
     Dates: start: 20140918, end: 20141114
  6. FORXIGA [Suspect]
     Active Substance: DAPAGLIFLOZIN
     Indication: TYPE 2 DIABETES MELLITUS
     Route: 048
     Dates: start: 20140613, end: 20141212
  7. SONIAS [Concomitant]
     Active Substance: GLIMEPIRIDE\PIOGLITAZONE HYDROCHLORIDE
     Indication: TYPE 2 DIABETES MELLITUS
     Dosage: LOW DOSE
     Route: 048
     Dates: start: 20140530, end: 20140711
  8. LANTUS [Concomitant]
     Active Substance: INSULIN GLARGINE
     Route: 042
     Dates: end: 20140626

REACTIONS (4)
  - Blood uric acid decreased [Not Recovered/Not Resolved]
  - Angina unstable [Recovered/Resolved]
  - Haematocrit decreased [Not Recovered/Not Resolved]
  - Blood pressure fluctuation [Recovering/Resolving]

NARRATIVE: CASE EVENT DATE: 20140918
